FAERS Safety Report 14497925 (Version 2)
Quarter: 2018Q3

REPORT INFORMATION
  Report Type: Report from Study
  Country: PL (occurrence: PL)
  Receive Date: 20180207
  Receipt Date: 20180801
  Transmission Date: 20181010
  Serious: Yes (Hospitalization)
  Sender: FDA-Public Use
  Company Number: PL-TEVA-2018-PL-855303

PATIENT
  Age: 54 Year
  Sex: Female
  Weight: 68 kg

DRUGS (8)
  1. CARBOPLATIN. [Suspect]
     Active Substance: CARBOPLATIN
     Indication: OVARIAN CANCER
     Dosage: 530MG EVERY 3 WEEKS
     Route: 042
     Dates: start: 20170911, end: 20180111
  2. PACLITAXEL. [Suspect]
     Active Substance: PACLITAXEL
     Indication: OVARIAN CANCER
     Dosage: 106MG WEEKLY.
     Route: 042
     Dates: start: 20170911, end: 20180111
  3. AVELUMAB [Suspect]
     Active Substance: AVELUMAB
     Indication: OVARIAN CANCER
     Dosage: 730MG EVERY 3 WEEKS
     Route: 042
     Dates: start: 20170911, end: 20180111
  4. AVEDOL [Concomitant]
     Active Substance: CARVEDILOL
     Indication: HYPERTENSION
     Dosage: 12.5 MILLIGRAM DAILY;
     Route: 048
     Dates: start: 2010
  5. PRESTARIUM [Concomitant]
     Active Substance: PERINDOPRIL
     Indication: HYPERTENSION
     Dosage: 5 MILLIGRAM DAILY;
     Route: 048
     Dates: start: 2010
  6. METOPROLOL TARTRATE. [Concomitant]
     Active Substance: METOPROLOL TARTRATE
     Indication: HYPERTHYROIDISM
     Dosage: 75 MILLIGRAM DAILY;
     Route: 048
     Dates: start: 20171108
  7. ENCORTON [Concomitant]
     Active Substance: PREDNISONE
     Indication: HYPERTHYROIDISM
     Dosage: 10 MILLIGRAM DAILY;
     Route: 048
     Dates: start: 20171116
  8. OMEPRAZOLE. [Concomitant]
     Active Substance: OMEPRAZOLE
     Indication: PROPHYLAXIS
     Dosage: 40 MILLIGRAM DAILY;
     Route: 048
     Dates: start: 20170909

REACTIONS (1)
  - Lymphopenia [Recovered/Resolved]

NARRATIVE: CASE EVENT DATE: 20180112
